FAERS Safety Report 18639421 (Version 2)
Quarter: 2021Q1

REPORT INFORMATION
  Report Type: Spontaneous
  Country: US (occurrence: US)
  Receive Date: 20201219
  Receipt Date: 20210127
  Transmission Date: 20210419
  Serious: No
  Sender: FDA-Public Use
  Company Number: US-JNJFOC-20201217583

PATIENT
  Age: 58 Year
  Sex: Female

DRUGS (1)
  1. TREMFYA [Suspect]
     Active Substance: GUSELKUMAB
     Indication: PRODUCT USED FOR UNKNOWN INDICATION
     Route: 065

REACTIONS (4)
  - Drug delivery system malfunction [Unknown]
  - Product dose omission issue [Unknown]
  - Device malfunction [Unknown]
  - Product leakage [Unknown]

NARRATIVE: CASE EVENT DATE: 20201123
